FAERS Safety Report 6195979-4 (Version None)
Quarter: 2009Q2

REPORT INFORMATION
  Report Type: 
  Country: None (occurrence: None)
  Receive Date: 20090520
  Receipt Date: 20090518
  Transmission Date: 20091009
  Serious: Yes (Death, Hospitalization)
  Sender: FDA-Public Use
  Company Number: PHHY2008MX21934

PATIENT
  Age: 75 Year
  Sex: Male

DRUGS (1)
  1. DIOVAN HCT [Suspect]
     Indication: HYPERTENSION
     Dosage: 1 DF (160/25 MG), QD
     Route: 048
     Dates: start: 20060801, end: 20080904

REACTIONS (2)
  - BRAIN DEATH [None]
  - CEREBRAL DISORDER [None]
